FAERS Safety Report 9924461 (Version 1)
Quarter: 2014Q1

REPORT INFORMATION
  Report Type: Spontaneous
  Country: US (occurrence: None)
  Receive Date: 20140224
  Receipt Date: 20140224
  Transmission Date: 20141002
  Serious: Yes (Disabling)
  Sender: FDA-Public Use
  Company Number: None

PATIENT
  Age: 34 Year
  Sex: Male
  Weight: 81.65 kg

DRUGS (1)
  1. CIPRO [Suspect]
     Indication: CONSTIPATION
     Dosage: 30 TWICE DAILY
     Route: 048

REACTIONS (8)
  - Back pain [None]
  - Musculoskeletal pain [None]
  - Memory impairment [None]
  - Insomnia [None]
  - Muscle disorder [None]
  - Arthropathy [None]
  - Multi-organ disorder [None]
  - Musculoskeletal disorder [None]
